FAERS Safety Report 5169207-2 (Version None)
Quarter: 2006Q4

REPORT INFORMATION
  Report Type: 
  Country: None (occurrence: None)
  Receive Date: 20061211
  Receipt Date: 20061018
  Transmission Date: 20070319
  Serious: Yes (Hospitalization)
  Sender: FDA-Public Use
  Company Number: US-NOVOPROD-257802

PATIENT
  Age: 63 Year
  Sex: Male

DRUGS (8)
  1. NOVOLIN N [Suspect]
     Indication: INSULIN-REQUIRING TYPE II DIABETES MELLITUS
     Dosage: 85 IU, QD
     Route: 058
     Dates: end: 20060816
  2. NOVOLIN N [Suspect]
     Dosage: 85 IU, QD
     Route: 058
     Dates: start: 20060822, end: 20060822
  3. ASPIRIN [Concomitant]
     Indication: ILL-DEFINED DISORDER
     Dosage: 81 MG, QD
     Route: 048
  4. FELODIPINE [Concomitant]
     Indication: ILL-DEFINED DISORDER
     Dosage: 5 MG, QD
     Route: 048
  5. LISINOPRIL [Concomitant]
     Indication: HYPERTENSION
     Dosage: 40 MG, QD
     Route: 048
  6. METOPROLOL SUCCINATE [Concomitant]
     Indication: HYPERTENSION
     Dosage: 50 MG, BID
     Route: 048
  7. NAPROSYN                           /00256201/ [Concomitant]
     Indication: MUSCULOSKELETAL PAIN
     Dosage: 500 MG, PRN
     Route: 048
  8. BUPROPION HCL [Concomitant]
     Indication: DEPRESSION
     Dosage: 100 MG, BID

REACTIONS (3)
  - BLOOD GLUCOSE INCREASED [None]
  - PYREXIA [None]
  - VIRAL INFECTION [None]
